FAERS Safety Report 20482587 (Version 2)
Quarter: 2022Q1

REPORT INFORMATION
  Report Type: Spontaneous
  Country: CN (occurrence: CN)
  Receive Date: 20220217
  Receipt Date: 20220328
  Transmission Date: 20220423
  Serious: Yes (Other)
  Sender: FDA-Public Use
  Company Number: CN-SUN PHARMACEUTICAL INDUSTRIES LTD-2022R1-326502

PATIENT
  Age: 50 Year
  Sex: Female
  Weight: 55 kg

DRUGS (1)
  1. DEXAMETHASONE [Suspect]
     Active Substance: DEXAMETHASONE
     Indication: Obesity
     Dosage: 2 MILLIGRAM, DAILY
     Route: 048
     Dates: start: 201504, end: 201805

REACTIONS (8)
  - Intracranial pressure increased [Unknown]
  - Empty sella syndrome [Unknown]
  - Cerebrospinal fluid leakage [Unknown]
  - Renal tuberculosis [Recovered/Resolved]
  - Optic atrophy [Unknown]
  - Intentional product misuse [Unknown]
  - Cerebrospinal fluid leakage [Unknown]
  - Pulmonary tuberculosis [Recovered/Resolved]

NARRATIVE: CASE EVENT DATE: 20161201
